FAERS Safety Report 14988300 (Version 6)
Quarter: 2018Q4

REPORT INFORMATION
  Report Type: Spontaneous
  Country: US (occurrence: US)
  Receive Date: 20180608
  Receipt Date: 20181030
  Transmission Date: 20190204
  Serious: Yes (Hospitalization, Other)
  Sender: FDA-Public Use
  Company Number: PHEH2018US022277

PATIENT
  Sex: Female

DRUGS (1)
  1. TEGRETOL [Suspect]
     Active Substance: CARBAMAZEPINE
     Indication: SEIZURE
     Dosage: UNK, BID
     Route: 048

REACTIONS (73)
  - Eye pain [Unknown]
  - Pulmonary oedema [Unknown]
  - Neutropenia [Recovered/Resolved]
  - Photophobia [Unknown]
  - Acute respiratory failure [Recovering/Resolving]
  - Photosensitivity reaction [Unknown]
  - Deafness [Unknown]
  - Symblepharon [Unknown]
  - Subcutaneous abscess [Unknown]
  - Pain in extremity [Unknown]
  - Blister [Unknown]
  - Fatigue [Unknown]
  - Skin lesion [Recovering/Resolving]
  - Leukopenia [Unknown]
  - Burns third degree [Unknown]
  - Cellulitis [Unknown]
  - Upper respiratory tract infection [Unknown]
  - Cough [Unknown]
  - Back pain [Unknown]
  - Pharyngitis [Unknown]
  - Headache [Unknown]
  - Stevens-Johnson syndrome [Unknown]
  - Metabolic acidosis [Unknown]
  - Hypophosphataemia [Recovered/Resolved]
  - Pyrexia [Unknown]
  - Leukocytosis [Recovered/Resolved]
  - Thrombocytopenia [Unknown]
  - Stomatitis [Unknown]
  - Pancytopenia [Recovered/Resolved]
  - Corneal neovascularisation [Unknown]
  - Limbal stem cell deficiency [Unknown]
  - Anxiety [Unknown]
  - Mental status changes [Recovered/Resolved]
  - Pleural effusion [Unknown]
  - Sepsis [Unknown]
  - Anaemia [Recovering/Resolving]
  - Constipation [Recovered/Resolved]
  - Pain [Unknown]
  - Dry eye [Unknown]
  - Burns second degree [Unknown]
  - Vomiting [Unknown]
  - Thermal burn [Unknown]
  - Joint stiffness [Unknown]
  - Pharyngeal inflammation [Unknown]
  - Agitation [Unknown]
  - Tachycardia [Recovered/Resolved]
  - Corneal scar [Unknown]
  - Acute sinusitis [Unknown]
  - Chest pain [Unknown]
  - Rash [Unknown]
  - Urinary tract infection [Unknown]
  - Hypomagnesaemia [Recovered/Resolved]
  - Skin exfoliation [Unknown]
  - Weight decreased [Unknown]
  - Furuncle [Unknown]
  - Mouth ulceration [Unknown]
  - Respiratory failure [Unknown]
  - Pneumothorax [Recovered/Resolved]
  - Encephalopathy [Unknown]
  - Hyponatraemia [Recovered/Resolved]
  - Dysphagia [Unknown]
  - Migraine [Unknown]
  - Oropharyngeal pain [Unknown]
  - Toxic epidermal necrolysis [Recovering/Resolving]
  - Ulcerative keratitis [Unknown]
  - Hypokalaemia [Recovered/Resolved]
  - Hypermetabolism [Unknown]
  - Speech disorder [Unknown]
  - Blindness [Unknown]
  - Skin ulcer [Unknown]
  - Blepharitis [Unknown]
  - Erythema [Unknown]
  - Asthenia [Unknown]
